FAERS Safety Report 19800143 (Version 2)
Quarter: 2021Q4

REPORT INFORMATION
  Report Type: Report from Study
  Country: GB (occurrence: GB)
  Receive Date: 20210907
  Receipt Date: 20211103
  Transmission Date: 20220303
  Serious: Yes (Hospitalization, Other)
  Sender: FDA-Public Use
  Company Number: GB-IPSEN GROUP, RESEARCH AND DEVELOPMENT-2021-03074

PATIENT
  Age: 63 Year
  Sex: Female

DRUGS (4)
  1. EVEROLIMUS [Suspect]
     Active Substance: EVEROLIMUS
     Indication: Chemotherapy
     Dosage: UNK
     Route: 048
  2. LANREOTIDE [Suspect]
     Active Substance: LANREOTIDE
     Indication: Neuroendocrine tumour
     Dosage: 120 MG/0.5 ML EVERY 4 WEEKS
     Route: 058
  3. LANREOTIDE [Suspect]
     Active Substance: LANREOTIDE
     Dosage: 90 MG/0.3 ML EVERY 4 WEEKS
     Route: 058
     Dates: start: 20210212
  4. CREON [Concomitant]
     Active Substance: PANCRELIPASE AMYLASE\PANCRELIPASE LIPASE\PANCRELIPASE PROTEASE
     Indication: Abdominal pain
     Dosage: WITH THE MAIN MEAL

REACTIONS (12)
  - Lower respiratory tract infection [Not Recovered/Not Resolved]
  - Infection [Unknown]
  - Atrial fibrillation [Unknown]
  - Thyroid cancer [Recovering/Resolving]
  - Rib fracture [Unknown]
  - Neoplasm progression [Unknown]
  - Fall [Unknown]
  - Tachycardia [Recovering/Resolving]
  - Cardiac disorder [Unknown]
  - Urinary tract infection [Unknown]
  - Fatigue [Unknown]
  - Constipation [Unknown]

NARRATIVE: CASE EVENT DATE: 20210201
